FAERS Safety Report 4627596-9 (Version None)
Quarter: 2005Q2

REPORT INFORMATION
  Report Type: 
  Country: None (occurrence: None)
  Receive Date: 20050405
  Receipt Date: 20050328
  Transmission Date: 20051028
  Serious: Yes (Other)
  Sender: FDA-Public Use
  Company Number: US-2005-004437

PATIENT
  Sex: Female

DRUGS (1)
  1. ULTRAVIST (IOPROMIDE) INJECTION [Suspect]
     Dates: start: 20050304, end: 20050304

REACTIONS (1)
  - FACIAL PALSY [None]
